FAERS Safety Report 6291331-1 (Version None)
Quarter: 2009Q3

REPORT INFORMATION
  Report Type: 
  Country: None (occurrence: None)
  Receive Date: 20090730
  Receipt Date: 20090730
  Transmission Date: 20100115
  Serious: Yes (Hospitalization)
  Sender: FDA-Public Use
  Company Number: FR-WYE-G04150709

PATIENT
  Age: 4 Year
  Sex: Male
  Weight: 16 kg

DRUGS (4)
  1. ADVIL [Suspect]
     Indication: PYREXIA
     Route: 048
     Dates: start: 20090523, end: 20090601
  2. VANCOMYCIN [Concomitant]
     Indication: PNEUMONIA
     Dosage: UNKNOWN
     Route: 042
     Dates: start: 20090523, end: 20090601
  3. CLAFORAN [Concomitant]
     Indication: PNEUMONIA
     Dosage: UNKNOWN
     Route: 042
     Dates: start: 20090501, end: 20090601
  4. AMOXICILLIN TRIHYDRATE [Concomitant]
     Indication: PNEUMONIA
     Dosage: UNKNOWN
     Route: 042
     Dates: start: 20090523, end: 20090501

REACTIONS (2)
  - CONDITION AGGRAVATED [None]
  - PNEUMONIA [None]
